FAERS Safety Report 18467187 (Version 1)
Quarter: 2020Q4

REPORT INFORMATION
  Report Type: Spontaneous
  Country: NP (occurrence: NP)
  Receive Date: 20201105
  Receipt Date: 20201105
  Transmission Date: 20210114
  Serious: Yes (Hospitalization, Other)
  Sender: FDA-Public Use
  Company Number: NP-ALVOGEN-2020-ALVOGEN-115093

PATIENT
  Age: 29 Year
  Sex: Female

DRUGS (3)
  1. SERTRALINE [Concomitant]
     Active Substance: SERTRALINE HYDROCHLORIDE
     Indication: ADJUSTMENT DISORDER
  2. LEVOTHYROXINE. [Suspect]
     Active Substance: LEVOTHYROXINE
     Indication: HYPOTHYROIDISM
  3. PROPRANOLOL [Concomitant]
     Active Substance: PROPRANOLOL HYDROCHLORIDE
     Indication: ADJUSTMENT DISORDER

REACTIONS (6)
  - Intentional overdose [Unknown]
  - Loss of consciousness [Unknown]
  - Thyroxine increased [Recovering/Resolving]
  - Confusional state [Unknown]
  - Headache [Unknown]
  - Paraesthesia [Unknown]
